FAERS Safety Report 10828936 (Version 1)
Quarter: 2015Q1

REPORT INFORMATION
  Report Type: Report from Study
  Country: US (occurrence: US)
  Receive Date: 20150219
  Receipt Date: 20150219
  Transmission Date: 20150721
  Serious: No
  Sender: FDA-Public Use
  Company Number: US-ABBVIE-14P-163-1187048-00

PATIENT
  Age: 35 Year
  Sex: Female

DRUGS (12)
  1. BENTYL [Suspect]
     Active Substance: DICYCLOMINE HYDROCHLORIDE
     Dosage: DOSE INCREASED TO DOUBLE
     Dates: start: 201311, end: 201311
  2. VITAMIN D [Concomitant]
     Active Substance: CHOLECALCIFEROL
     Indication: PRODUCT USED FOR UNKNOWN INDICATION
  3. BENTYL [Suspect]
     Active Substance: DICYCLOMINE HYDROCHLORIDE
     Dosage: DECREASED TO ORIGINAL DOSE
     Dates: start: 201311
  4. DEXILANT [Concomitant]
     Active Substance: DEXLANSOPRAZOLE
     Indication: PRODUCT USED FOR UNKNOWN INDICATION
  5. LOESTRIN NOS [Concomitant]
     Active Substance: ETHINYL ESTRADIOL\NORETHINDRONE ACETATE
     Indication: CONTRACEPTION
     Dosage: PILLS
  6. WELLBUTRIN [Concomitant]
     Active Substance: BUPROPION HYDROCHLORIDE
     Indication: EX-TOBACCO USER
  7. BENTYL [Suspect]
     Active Substance: DICYCLOMINE HYDROCHLORIDE
     Indication: MUSCLE SPASMS
  8. CLONOPIN [Concomitant]
     Active Substance: CLONAZEPAM
     Indication: ANXIETY
  9. ZYRTEC [Concomitant]
     Active Substance: CETIRIZINE HYDROCHLORIDE
     Indication: HYPERSENSITIVITY
  10. HUMIRA [Suspect]
     Active Substance: ADALIMUMAB
     Indication: CROHN^S DISEASE
     Dates: start: 201307
  11. ASACOL [Concomitant]
     Active Substance: MESALAMINE
     Indication: CROHN^S DISEASE
  12. PAMINE FORTE [Concomitant]
     Active Substance: METHSCOPOLAMINE BROMIDE
     Indication: PRODUCT USED FOR UNKNOWN INDICATION
     Dosage: AS NEEDED

REACTIONS (17)
  - Somnolence [Recovering/Resolving]
  - Injection site haemorrhage [Recovering/Resolving]
  - Abdominal rigidity [Recovered/Resolved]
  - Fatigue [Recovering/Resolving]
  - Nasal dryness [Unknown]
  - Dry mouth [Unknown]
  - Lethargy [Recovering/Resolving]
  - Sensory disturbance [Recovering/Resolving]
  - Stress [Recovering/Resolving]
  - Dry eye [Unknown]
  - Dizziness [Recovering/Resolving]
  - Injection site bruising [Recovering/Resolving]
  - Pain [Recovered/Resolved]
  - Vision blurred [Unknown]
  - Fear of injection [Not Recovered/Not Resolved]
  - Injection site pain [Recovering/Resolving]
  - Visual impairment [Unknown]

NARRATIVE: CASE EVENT DATE: 201311
